FAERS Safety Report 25837979 (Version 1)
Quarter: 2025Q3

REPORT INFORMATION
  Report Type: Spontaneous
  Country: EU (occurrence: EU)
  Receive Date: 20250923
  Receipt Date: 20250923
  Transmission Date: 20251021
  Serious: Yes (Death, Life-Threatening, Hospitalization, Other)
  Sender: MYLAN
  Company Number: EU-BIOVITRUM-2025-BE-007070

PATIENT
  Age: 6 Year
  Sex: Male
  Weight: 20 kg

DRUGS (24)
  1. ETOPOSIDE [Suspect]
     Active Substance: ETOPOSIDE
     Indication: Haemophagocytic lymphohistiocytosis
  2. GAMIFANT [Suspect]
     Active Substance: EMAPALUMAB-LZSG
     Indication: Haemophagocytic lymphohistiocytosis
  3. GAMIFANT [Suspect]
     Active Substance: EMAPALUMAB-LZSG
     Indication: Lysinuric protein intolerance
  4. GAMIFANT [Suspect]
     Active Substance: EMAPALUMAB-LZSG
  5. GAMIFANT [Suspect]
     Active Substance: EMAPALUMAB-LZSG
  6. GAMIFANT [Suspect]
     Active Substance: EMAPALUMAB-LZSG
  7. GAMIFANT [Suspect]
     Active Substance: EMAPALUMAB-LZSG
  8. KINERET [Suspect]
     Active Substance: ANAKINRA
     Indication: Haemophagocytic lymphohistiocytosis
     Dosage: 2 MILLIGRAM/KILOGRAM, QD, 1X/DAY
     Dates: end: 20250516
  9. KINERET [Suspect]
     Active Substance: ANAKINRA
     Indication: Lysinuric protein intolerance
  10. KINERET [Suspect]
     Active Substance: ANAKINRA
  11. CYCLOSPORINE [Suspect]
     Active Substance: CYCLOSPORINE
     Indication: Haemophagocytic lymphohistiocytosis
  12. CYCLOSPORINE [Suspect]
     Active Substance: CYCLOSPORINE
     Dosage: 1 MILLIGRAM/KILOGRAM, BID, 2X/DAY
     Dates: start: 202503
  13. METHYLPREDNISOLONE [Suspect]
     Active Substance: METHYLPREDNISOLONE
     Indication: Haemophagocytic lymphohistiocytosis
     Dosage: 2 MILLIGRAM/KILOGRAM, QD, 2 MG/KG/DAY
     Dates: start: 20250310
  14. METHYLPREDNISOLONE [Suspect]
     Active Substance: METHYLPREDNISOLONE
     Dates: start: 20250507, end: 20250511
  15. METHYLPREDNISOLONE [Suspect]
     Active Substance: METHYLPREDNISOLONE
     Dosage: 1 MILLIGRAM/KILOGRAM, BID, 2X/DAY
     Dates: start: 20250512
  16. METHYLPREDNISOLONE [Suspect]
     Active Substance: METHYLPREDNISOLONE
  17. FUROSEMIDE [Concomitant]
     Active Substance: FUROSEMIDE
     Indication: Prophylaxis
  18. LISINOPRIL [Concomitant]
     Active Substance: LISINOPRIL
     Indication: Prophylaxis
  19. SPIRONOLACTONE [Concomitant]
     Active Substance: SPIRONOLACTONE
     Indication: Prophylaxis
  20. DIAZEPAM [Concomitant]
     Active Substance: DIAZEPAM
     Indication: Product used for unknown indication
  21. CHLORAL HYDRATE [Concomitant]
     Active Substance: CHLORAL HYDRATE
     Indication: Product used for unknown indication
  22. ATENOLOL [Concomitant]
     Active Substance: ATENOLOL
     Indication: Prophylaxis
  23. AMLODIPINE [Concomitant]
     Active Substance: AMLODIPINE BESYLATE
     Indication: Prophylaxis
  24. CITRULLINE [Concomitant]
     Active Substance: CITRULLINE
     Indication: Metabolic disorder

REACTIONS (12)
  - Haemophagocytic lymphohistiocytosis [Fatal]
  - Condition aggravated [Fatal]
  - Respiratory failure [Fatal]
  - Enterobacter infection [Fatal]
  - Alveolar proteinosis [Fatal]
  - Escherichia sepsis [Recovered/Resolved]
  - Myopathy [Unknown]
  - Pneumonia cytomegaloviral [Unknown]
  - Pseudo Cushing^s syndrome [Unknown]
  - Colitis [Unknown]
  - Streptococcal sepsis [Unknown]
  - Platelet count decreased [Unknown]

NARRATIVE: CASE EVENT DATE: 20250310
